FAERS Safety Report 9317032 (Version 1)
Quarter: 2013Q2

REPORT INFORMATION
  Report Type: Spontaneous
  Country: US (occurrence: None)
  Receive Date: 20130528
  Receipt Date: 20130528
  Transmission Date: 20140414
  Serious: Yes (Disabling)
  Sender: FDA-Public Use
  Company Number: None

PATIENT
  Age: 40 Year
  Sex: Female
  Weight: 90.27 kg

DRUGS (1)
  1. DEPO MEDROL [Suspect]
     Indication: BACK PAIN
     Route: 008
     Dates: start: 20070624, end: 20081015

REACTIONS (5)
  - Pain [None]
  - Urinary incontinence [None]
  - Muscle spasms [None]
  - Paralysis [None]
  - Arachnoiditis [None]
